FAERS Safety Report 8094027-9 (Version None)
Quarter: 2012Q1

REPORT INFORMATION
  Report Type: 
  Country: None (occurrence: None)
  Receive Date: 20120131
  Receipt Date: 20120126
  Transmission Date: 20120608
  Serious: Yes (Hospitalization)
  Sender: FDA-Public Use
  Company Number: PHHY2012TR007216

PATIENT
  Age: 8 Year
  Sex: Male

DRUGS (1)
  1. EXJADE [Suspect]
     Indication: APLASTIC ANAEMIA

REACTIONS (3)
  - DYSPNOEA [None]
  - DYSPHAGIA [None]
  - SPINAL CORD COMPRESSION [None]
